FAERS Safety Report 15010042 (Version 1)
Quarter: 2018Q2

REPORT INFORMATION
  Report Type: Spontaneous
  Country: US (occurrence: US)
  Receive Date: 20180527
  Receipt Date: 20180527
  Transmission Date: 20180711
  Serious: Yes (Disabling)
  Sender: FDA-Public Use
  Company Number: None

PATIENT
  Age: 31 Year
  Sex: Male
  Weight: 153 kg

DRUGS (2)
  1. OXYCODONE AND ACETAMINOPHEN [Suspect]
     Active Substance: ACETAMINOPHEN\OXYCODONE HYDROCHLORIDE
     Indication: FIBROMYALGIA
     Dosage: ?          QUANTITY:150 TABLET(S);?
     Route: 048
     Dates: start: 20180515, end: 20180516
  2. OXYCODONE AND ACETAMINOPHEN [Suspect]
     Active Substance: ACETAMINOPHEN\OXYCODONE HYDROCHLORIDE
     Indication: CHRONIC FATIGUE SYNDROME
     Dosage: ?          QUANTITY:150 TABLET(S);?
     Route: 048
     Dates: start: 20180515, end: 20180516

REACTIONS (5)
  - Cardiac disorder [None]
  - Vomiting [None]
  - Tachycardia [None]
  - Malaise [None]
  - Gastrointestinal pain [None]

NARRATIVE: CASE EVENT DATE: 20180516
